FAERS Safety Report 9026846 (Version 1)
Quarter: 2013Q1

REPORT INFORMATION
  Report Type: Spontaneous
  Country: IT (occurrence: None)
  Receive Date: 20130109
  Receipt Date: 20130109
  Transmission Date: 20140127
  Serious: Yes (Other)
  Sender: FDA-Public Use
  Company Number: GER/ITL/12/0027265

PATIENT
  Age: 79 Year
  Sex: Female

DRUGS (5)
  1. RAMIPRIL (RAMIPRIL) [Suspect]
     Indication: PRODUCT USED FOR UNKNOWN INDICATION
     Route: 048
     Dates: start: 20121101, end: 20121224
  2. CARDIOASPIRIN (ACETYLSALICYLIC ACID) [Suspect]
     Indication: PRODUCT USED FOR UNKNOWN INDICATION
     Route: 048
     Dates: start: 20121101, end: 20121224
  3. ALLOPURINOL [Suspect]
     Indication: PRODUCT USED FOR UNKNOWN INDICATION
     Route: 048
     Dates: start: 20121101, end: 20121224
  4. SIMVASTATIN (SIMVASTATIN) [Suspect]
     Route: 048
     Dates: start: 20121101, end: 20121224
  5. FUROSEMIDE (FUROSEMIDE) [Suspect]
     Indication: PRODUCT USED FOR UNKNOWN INDICATION
     Route: 048
     Dates: start: 20121101, end: 20121224

REACTIONS (1)
  - Stevens-Johnson syndrome [None]
